FAERS Safety Report 15353390 (Version 1)
Quarter: 2018Q3

REPORT INFORMATION
  Report Type: Spontaneous
  Country: GB (occurrence: GB)
  Receive Date: 20180905
  Receipt Date: 20180905
  Transmission Date: 20181010
  Serious: Yes (Death)
  Sender: FDA-Public Use
  Company Number: GB-PFIZER INC-2018357484

PATIENT
  Age: 32 Year
  Sex: Female

DRUGS (4)
  1. TRAMADOL. [Suspect]
     Active Substance: TRAMADOL
  2. PREGABALIN. [Suspect]
     Active Substance: PREGABALIN
  3. TRAZODONE HYDROCHLORIDE. [Suspect]
     Active Substance: TRAZODONE HYDROCHLORIDE
  4. ZOPICLONE [Suspect]
     Active Substance: ZOPICLONE
     Dosage: UNK

REACTIONS (2)
  - Overdose [Fatal]
  - Drug level increased [Fatal]
